FAERS Safety Report 4591015-1 (Version None)
Quarter: 2005Q1

REPORT INFORMATION
  Report Type: 
  Country: None (occurrence: None)
  Receive Date: 20050222
  Receipt Date: 20050222
  Transmission Date: 20050727
  Serious: No
  Sender: FDA-Public Use
  Company Number: None

PATIENT
  Age: 38 Year
  Sex: Female

DRUGS (6)
  1. AZITHROMYCIN [Suspect]
     Indication: INFECTION
     Dosage: 500 MG DAILY INTRAVENOUS
     Route: 042
     Dates: start: 20040709, end: 20040712
  2. ATROVENT [Concomitant]
  3. PROVENTIL [Concomitant]
  4. FLOVENT [Concomitant]
  5. ZARIRLUKAST [Concomitant]
  6. CEFTRIAXONE [Concomitant]

REACTIONS (4)
  - BURNING SENSATION [None]
  - HYPOAESTHESIA [None]
  - INFUSION RELATED REACTION [None]
  - PARAESTHESIA [None]
